FAERS Safety Report 6389653-9 (Version None)
Quarter: 2009Q4

REPORT INFORMATION
  Report Type: 
  Country: None (occurrence: None)
  Receive Date: 20091006
  Receipt Date: 20090925
  Transmission Date: 20100525
  Serious: Yes (Other)
  Sender: FDA-Public Use
  Company Number: JP-BRISTOL-MYERS SQUIBB COMPANY-14339337

PATIENT
  Age: 33 Year
  Sex: Female
  Weight: 73 kg

DRUGS (1)
  1. ABILIFY [Suspect]
     Indication: SCHIZOPHRENIA
     Dosage: 23MAR-05APR07:6MG/D(14 D) 06APR07-07AUG08:12MG/D(490 D) 08AUG-25SEP08:6MG/D(49 D) 13JAN09:12MG/D
     Route: 048
     Dates: start: 20070323

REACTIONS (5)
  - CAESAREAN SECTION [None]
  - DRUG EXPOSURE VIA BREAST MILK [None]
  - NORMAL NEWBORN [None]
  - OLIGOHYDRAMNIOS [None]
  - PREGNANCY [None]
